FAERS Safety Report 6716991-X (Version None)
Quarter: 2010Q2

REPORT INFORMATION
  Report Type: 
  Country: None (occurrence: None)
  Receive Date: 20100510
  Receipt Date: 20100504
  Transmission Date: 20101027
  Serious: Yes (Disabling)
  Sender: FDA-Public Use
  Company Number: US-BAYER-201015057BCC

PATIENT
  Age: 62 Year
  Sex: Male
  Weight: 125 kg

DRUGS (2)
  1. ALEVE (CAPLET) [Suspect]
     Indication: BACK PAIN
     Dosage: AS USED: 220/440 MG
     Route: 048
     Dates: start: 20070101
  2. DIOVAN [Concomitant]

REACTIONS (2)
  - DEAFNESS [None]
  - TINNITUS [None]
